FAERS Safety Report 18325058 (Version 1)
Quarter: 2020Q3

REPORT INFORMATION
  Report Type: Spontaneous
  Country: GB (occurrence: GB)
  Receive Date: 20200929
  Receipt Date: 20200929
  Transmission Date: 20201103
  Serious: Yes (Death, Hospitalization, Other)
  Sender: FDA-Public Use
  Company Number: GB-ALEXION-A202014236

PATIENT
  Age: 43 Year
  Sex: Male

DRUGS (3)
  1. SOLIRIS [Suspect]
     Active Substance: ECULIZUMAB
     Indication: PAROXYSMAL NOCTURNAL HAEMOGLOBINURIA
     Dosage: 900 MG, Q2W
     Route: 065
     Dates: start: 2015
  2. WARFARIN [Concomitant]
     Active Substance: WARFARIN
     Indication: ANTICOAGULANT THERAPY
     Route: 065
  3. METFORMIN [Concomitant]
     Active Substance: METFORMIN HYDROCHLORIDE
     Indication: TYPE 2 DIABETES MELLITUS
     Route: 065

REACTIONS (9)
  - Bacterial infection [Unknown]
  - Haemoglobin decreased [Unknown]
  - SARS-CoV-2 test positive [Unknown]
  - General physical health deterioration [Fatal]
  - Haemoglobinuria [Unknown]
  - Haemolysis [Unknown]
  - COVID-19 [Unknown]
  - Blood lactate dehydrogenase increased [Unknown]
  - Respiratory failure [Unknown]

NARRATIVE: CASE EVENT DATE: 2020
